FAERS Safety Report 7589633-1 (Version None)
Quarter: 2011Q3

REPORT INFORMATION
  Report Type: 
  Country: None (occurrence: None)
  Receive Date: 20110705
  Receipt Date: 20110630
  Transmission Date: 20111222
  Serious: Yes (Other)
  Sender: FDA-Public Use
  Company Number: JP-PFIZER INC-2011146084

PATIENT
  Age: 60 Year
  Sex: Male

DRUGS (3)
  1. LYRICA [Suspect]
     Indication: PAIN
     Dosage: 50 MG/DAY
     Route: 048
     Dates: start: 20110617
  2. CELECOXIB [Concomitant]
     Dosage: 200 MG/DAY
     Route: 048
     Dates: start: 20110617
  3. NEUROTROPIN [Concomitant]
     Indication: PAIN
     Dosage: UNK
     Route: 048
     Dates: start: 20110617

REACTIONS (1)
  - GLOSSOPTOSIS [None]
